FAERS Safety Report 24292298 (Version 1)
Quarter: 2024Q3

REPORT INFORMATION
  Report Type: Spontaneous
  Country: US (occurrence: US)
  Receive Date: 20240906
  Receipt Date: 20240906
  Transmission Date: 20241017
  Serious: Yes (Death, Hospitalization, Other)
  Sender: INSUD PHARMA
  Company Number: US-INSUD PHARMA-2408US06874

PATIENT

DRUGS (1)
  1. KETOCONAZOLE [Suspect]
     Active Substance: KETOCONAZOLE
     Indication: Cortisol increased
     Dosage: UNK
     Route: 065

REACTIONS (8)
  - Pneumocystis jirovecii pneumonia [Fatal]
  - Asthenia [Unknown]
  - Dyspnoea [Unknown]
  - Pyrexia [Unknown]
  - Immune reconstitution inflammatory syndrome [Unknown]
  - Respiratory failure [Unknown]
  - Pulmonary embolism [Unknown]
  - Haemorrhagic stroke [Unknown]
